FAERS Safety Report 13595977 (Version 6)
Quarter: 2017Q4

REPORT INFORMATION
  Report Type: Spontaneous
  Country: NL (occurrence: NL)
  Receive Date: 20170531
  Receipt Date: 20171109
  Transmission Date: 20180320
  Serious: Yes (Life-Threatening, Hospitalization, Other)
  Sender: FDA-Public Use
  Company Number: NL-SUN PHARMACEUTICAL INDUSTRIES LTD-2017R1-141936

PATIENT
  Age: 53 Year
  Sex: Female

DRUGS (1)
  1. DILTIAZEM. [Suspect]
     Active Substance: DILTIAZEM
     Indication: PRODUCT USED FOR UNKNOWN INDICATION
     Dosage: UNK
     Route: 065

REACTIONS (10)
  - Overdose [Unknown]
  - Hyperkalaemia [Unknown]
  - Depressed level of consciousness [Unknown]
  - Lactic acidosis [Recovering/Resolving]
  - Atrioventricular block complete [Recovering/Resolving]
  - Vomiting [Unknown]
  - Urinary incontinence [Unknown]
  - Hyperglycaemia [Unknown]
  - Toxicity to various agents [Unknown]
  - Cardiogenic shock [Recovering/Resolving]
